FAERS Safety Report 23205806 (Version 1)
Quarter: 2023Q4

REPORT INFORMATION
  Report Type: Spontaneous
  Country: CN (occurrence: CN)
  Receive Date: 20231120
  Receipt Date: 20231120
  Transmission Date: 20240110
  Serious: Yes (Life-Threatening, Other)
  Sender: FDA-Public Use
  Company Number: CN-PFIZER INC-PV202300185077

PATIENT
  Age: 72 Year
  Sex: Female

DRUGS (2)
  1. TIGECYCLINE [Suspect]
     Active Substance: TIGECYCLINE
     Indication: Therapeutic procedure
     Dosage: 50 MG, 2X/DAY
     Route: 041
     Dates: start: 20201230, end: 20210108
  2. MEROPENEM [Suspect]
     Active Substance: MEROPENEM
     Indication: Infection
     Dosage: 0.5 G, 2X/DAY
     Route: 041
     Dates: start: 20201223, end: 20210108

REACTIONS (3)
  - Platelet count decreased [Recovered/Resolved]
  - Procalcitonin increased [Unknown]
  - Condition aggravated [Unknown]

NARRATIVE: CASE EVENT DATE: 20210107
